FAERS Safety Report 13758472 (Version 1)
Quarter: 2017Q3

REPORT INFORMATION
  Report Type: Spontaneous
  Country: US (occurrence: US)
  Receive Date: 20170715
  Receipt Date: 20170715
  Transmission Date: 20171127
  Serious: Yes (Hospitalization)
  Sender: FDA-Public Use
  Company Number: None

PATIENT
  Age: 70 Year
  Sex: Female
  Weight: 97.7 kg

DRUGS (1)
  1. ERBITUX [Suspect]
     Active Substance: CETUXIMAB
     Dates: end: 20170525

REACTIONS (5)
  - Vomiting [None]
  - Abdominal pain [None]
  - Nausea [None]
  - Ileus [None]
  - Diarrhoea [None]

NARRATIVE: CASE EVENT DATE: 20170707
